FAERS Safety Report 23032629 (Version 1)
Quarter: 2023Q4

REPORT INFORMATION
  Report Type: Spontaneous
  Country: US (occurrence: None)
  Receive Date: 20231004
  Receipt Date: 20231004
  Transmission Date: 20240110
  Serious: No
  Sender: FDA-Public Use
  Company Number: None

PATIENT
  Age: 85 Year

DRUGS (1)
  1. FIRMAGON [Suspect]
     Active Substance: DEGARELIX ACETATE

REACTIONS (6)
  - Injection site pain [None]
  - Hyperhidrosis [None]
  - Blood pressure decreased [None]
  - Pallor [None]
  - Syncope [None]
  - Presyncope [None]

NARRATIVE: CASE EVENT DATE: 20230828
